FAERS Safety Report 4533910-5 (Version None)
Quarter: 2004Q4

REPORT INFORMATION
  Report Type: 
  Country: None (occurrence: None)
  Receive Date: 20041202
  Receipt Date: 20040126
  Transmission Date: 20050328
  Serious: Yes (Other)
  Sender: FDA-Public Use
  Company Number: 269121

PATIENT
  Age: 41 Year
  Sex: Male
  Weight: 93 kg

DRUGS (3)
  1. VALIUM [Suspect]
     Indication: ANXIETY
     Dosage: ORAL
     Route: 048
     Dates: start: 19780615
  2. KLONOPIN [Suspect]
     Dosage: ORAL
     Route: 048
  3. LITHIUM (LITHIUM NOS) [Suspect]
     Indication: BIPOLAR DISORDER

REACTIONS (5)
  - COGNITIVE DISORDER [None]
  - DIZZINESS [None]
  - DRUG WITHDRAWAL SYNDROME [None]
  - LIBIDO DECREASED [None]
  - SEXUAL DYSFUNCTION [None]
